FAERS Safety Report 4338486-3 (Version None)
Quarter: 2004Q2

REPORT INFORMATION
  Report Type: 
  Country: None (occurrence: None)
  Receive Date: 20040414
  Receipt Date: 20040405
  Transmission Date: 20050107
  Serious: Yes (Life-Threatening)
  Sender: FDA-Public Use
  Company Number: CA-GLAXOSMITHKLINE-A0506020A

PATIENT
  Age: 32 Year
  Sex: Female

DRUGS (2)
  1. PAXIL [Suspect]
     Indication: DEPRESSION
     Dosage: 20MG PER DAY
     Route: 048
     Dates: start: 20040226, end: 20040331
  2. IMOVANE [Suspect]
     Indication: DRUG USE FOR UNKNOWN INDICATION
     Dosage: 7.5MG PER DAY
     Route: 048
     Dates: start: 20030101

REACTIONS (9)
  - AGGRESSION [None]
  - AMNESIA [None]
  - DEMENTIA [None]
  - INTENTIONAL SELF-INJURY [None]
  - IRRITABILITY [None]
  - PERSONALITY CHANGE [None]
  - SLEEP DISORDER [None]
  - SUICIDE ATTEMPT [None]
  - TREMOR [None]
